FAERS Safety Report 9418346 (Version 3)
Quarter: 2016Q1

REPORT INFORMATION
  Report Type: Report from Study
  Country: CO (occurrence: CO)
  Receive Date: 20130725
  Receipt Date: 20160120
  Transmission Date: 20160526
  Serious: Yes (Hospitalization)
  Sender: FDA-Public Use
  Company Number: CO-ROCHE-1252734

PATIENT
  Age: 22 Year
  Sex: Female

DRUGS (1)
  1. CELLCEPT [Suspect]
     Active Substance: MYCOPHENOLATE MOFETIL\MYCOPHENOLATE MOFETIL HYDROCHLORIDE
     Indication: RENAL TRANSPLANT
     Route: 048
     Dates: start: 20130424, end: 20131023

REACTIONS (4)
  - Hypercreatinaemia [Unknown]
  - Anaemia [Recovered/Resolved]
  - Gastroenteritis [Recovered/Resolved]
  - Gastroenteritis bacterial [Unknown]

NARRATIVE: CASE EVENT DATE: 20130718
